FAERS Safety Report 16067782 (Version 1)
Quarter: 2019Q1

REPORT INFORMATION
  Report Type: Spontaneous
  Country: US (occurrence: US)
  Receive Date: 20190212
  Receipt Date: 20190212
  Transmission Date: 20190418
  Serious: Yes (Life-Threatening)
  Sender: FDA-Public Use
  Company Number: None

PATIENT
  Age: 79 Year
  Sex: Male

DRUGS (3)
  1. LANTUS [Concomitant]
     Active Substance: INSULIN GLARGINE
  2. LUPRON DEPOT [Suspect]
     Active Substance: LEUPROLIDE ACETATE
     Indication: BONE CANCER
     Dosage: ?          QUANTITY:45 MG MILLIGRAM(S);?
     Dates: start: 20180222
  3. HUMALOG [Concomitant]
     Active Substance: INSULIN LISPRO

REACTIONS (8)
  - Respiratory disorder [None]
  - Cardiac disorder [None]
  - Fatigue [None]
  - Arthropathy [None]
  - Diabetes mellitus [None]
  - Pain [None]
  - Testicular atrophy [None]
  - Hot flush [None]

NARRATIVE: CASE EVENT DATE: 20180222
